FAERS Safety Report 7099392-7 (Version None)
Quarter: 2010Q4

REPORT INFORMATION
  Report Type: 
  Country: None (occurrence: None)
  Receive Date: 20101112
  Receipt Date: 20091009
  Transmission Date: 20110411
  Serious: Yes (Hospitalization)
  Sender: FDA-Public Use
  Company Number: DE-PFIZER INC-2010138724

PATIENT
  Age: 60 Year
  Sex: Female
  Weight: 40 kg

DRUGS (2)
  1. EXEMESTANE [Suspect]
     Indication: BREAST CANCER FEMALE
     Dosage: 25 MG, 1X/DAY
     Route: 048
     Dates: start: 20050318, end: 20070202
  2. EXEMESTANE [Suspect]
     Dosage: 25 MG, 1X/DAY
     Route: 048
     Dates: start: 20070216

REACTIONS (1)
  - COMPRESSION FRACTURE [None]
